FAERS Safety Report 15591548 (Version 3)
Quarter: 2018Q4

REPORT INFORMATION
  Report Type: Spontaneous
  Country: US (occurrence: US)
  Receive Date: 20181106
  Receipt Date: 20181214
  Transmission Date: 20190205
  Serious: Yes (Other)
  Sender: FDA-Public Use
  Company Number: US-ASTRAZENECA-2018SF43161

PATIENT
  Sex: Female

DRUGS (3)
  1. TUDORZA PRESSAIR [Suspect]
     Active Substance: ACLIDINIUM BROMIDE
     Route: 055
  2. PREDNISONE. [Suspect]
     Active Substance: PREDNISONE
     Route: 065
  3. AUGMENTIN [Suspect]
     Active Substance: AMOXICILLIN\CLAVULANATE POTASSIUM
     Route: 065

REACTIONS (9)
  - Breast cancer female [Unknown]
  - Fall [Unknown]
  - Diarrhoea [Unknown]
  - Intentional device misuse [Unknown]
  - Product dose omission [Unknown]
  - Device malfunction [Unknown]
  - Heart rate increased [Unknown]
  - Bronchitis [Unknown]
  - Incorrect dose administered [Unknown]
